FAERS Safety Report 8650600 (Version 2)
Quarter: 2013Q2

REPORT INFORMATION
  Report Type: Spontaneous
  Country: JP (occurrence: JP)
  Receive Date: 20120705
  Receipt Date: 20130404
  Transmission Date: 20140414
  Serious: Yes (Death, Hospitalization)
  Sender: FDA-Public Use
  Company Number: JP-BAYER-2012-064151

PATIENT
  Age: 77 Year
  Sex: Male
  Weight: 54 kg

DRUGS (2)
  1. NEXAVAR [Suspect]
     Indication: HEPATOCELLULAR CARCINOMA
     Dosage: 400 MG, QD
     Route: 048
     Dates: start: 20120605, end: 20120627
  2. LASIX [Concomitant]
     Indication: AMMONIA INCREASED
     Dosage: DAILY DOSE 40 MG
     Route: 048
     Dates: start: 20120602, end: 20120613

REACTIONS (6)
  - Muscular weakness [Recovering/Resolving]
  - Acute hepatic failure [Fatal]
  - Platelet count decreased [None]
  - Rash [None]
  - Blood uric acid increased [Recovered/Resolved]
  - Diarrhoea [Recovering/Resolving]
